FAERS Safety Report 11937138 (Version 4)
Quarter: 2016Q2

REPORT INFORMATION
  Report Type: Spontaneous
  Country: BR (occurrence: BR)
  Receive Date: 20160121
  Receipt Date: 20160513
  Transmission Date: 20160815
  Serious: Yes (Life-Threatening, Other)
  Sender: FDA-Public Use
  Company Number: PHHY2016BR007665

PATIENT
  Age: 60 Year
  Sex: Female

DRUGS (1)
  1. DIOVAN [Suspect]
     Active Substance: VALSARTAN
     Indication: PRODUCT USED FOR UNKNOWN INDICATION
     Route: 065
     Dates: start: 201601

REACTIONS (19)
  - Feeling abnormal [Unknown]
  - Blood pressure fluctuation [Recovering/Resolving]
  - Influenza [Recovering/Resolving]
  - Pyrexia [Recovering/Resolving]
  - Malaise [Unknown]
  - General physical health deterioration [Unknown]
  - Blood pressure increased [Recovering/Resolving]
  - Eye pruritus [Recovering/Resolving]
  - Eye pain [Unknown]
  - Headache [Unknown]
  - Tremor [Unknown]
  - Ocular hyperaemia [Recovering/Resolving]
  - Heart rate increased [Unknown]
  - Insomnia [Unknown]
  - Eye swelling [Recovering/Resolving]
  - Pigmentation disorder [Recovering/Resolving]
  - Dizziness [Unknown]
  - Drug intolerance [Unknown]
  - Vision blurred [Unknown]

NARRATIVE: CASE EVENT DATE: 201601
